FAERS Safety Report 4968193-5 (Version None)
Quarter: 2006Q2

REPORT INFORMATION
  Report Type: 
  Country: None (occurrence: None)
  Receive Date: 20060405
  Receipt Date: 20060320
  Transmission Date: 20061013
  Serious: Yes (Disabling)
  Sender: FDA-Public Use
  Company Number: CIP05001863

PATIENT
  Age: 66 Year
  Sex: Female

DRUGS (3)
  1. ACTONEL [Suspect]
     Indication: OSTEOPOROSIS
     Dosage: 35 MG ONCE WEEKLY, ORAL
     Route: 048
     Dates: start: 20031110, end: 20050415
  2. CALCIUM WITH VITAMIN D (CALCIUM PHOSPHATE, CALCIUM SODIUM LACTATE, ERG [Concomitant]
  3. PANAMAX (PARACETAMOL) [Concomitant]

REACTIONS (7)
  - BONE DISORDER [None]
  - FACIAL PAIN [None]
  - IMPAIRED HEALING [None]
  - OSTEONECROSIS [None]
  - PROCEDURAL PAIN [None]
  - SWELLING FACE [None]
  - TOOTH EXTRACTION [None]
